FAERS Safety Report 8794907 (Version 2)
Quarter: 2012Q4

REPORT INFORMATION
  Report Type: Report from Study
  Country: JP (occurrence: JP)
  Receive Date: 20120918
  Receipt Date: 20121012
  Transmission Date: 20130627
  Serious: Yes (Hospitalization)
  Sender: FDA-Public Use
  Company Number: JP-ROCHE-1124562

PATIENT
  Age: 57 Year
  Sex: Female

DRUGS (22)
  1. ROACTEMRA [Suspect]
     Indication: RHEUMATOID ARTHRITIS
     Route: 041
     Dates: start: 20090302, end: 20110901
  2. PREDNISOLONE [Suspect]
     Indication: RHEUMATOID ARTHRITIS
     Route: 048
     Dates: start: 2009, end: 20090302
  3. PREDNISOLONE [Suspect]
     Indication: RHEUMATOID ARTHRITIS
     Route: 048
     Dates: start: 20090303, end: 20090401
  4. PREDNISOLONE [Suspect]
     Indication: RHEUMATOID ARTHRITIS
     Route: 048
     Dates: start: 20090402, end: 20090506
  5. PREDNISOLONE [Suspect]
     Indication: RHEUMATOID ARTHRITIS
     Route: 048
     Dates: start: 20090507, end: 20090708
  6. PREDNISOLONE [Suspect]
     Indication: RHEUMATOID ARTHRITIS
     Route: 048
     Dates: start: 20090709, end: 20090805
  7. PREDNISOLONE [Suspect]
     Indication: RHEUMATOID ARTHRITIS
     Route: 048
     Dates: start: 20090806
  8. METHOTREXATE [Concomitant]
     Indication: RHEUMATOID ARTHRITIS
     Route: 048
     Dates: end: 20110413
  9. METHOTREXATE [Concomitant]
     Indication: RHEUMATOID ARTHRITIS
     Route: 048
     Dates: start: 20110414, end: 20110831
  10. METHOTREXATE [Concomitant]
     Indication: RHEUMATOID ARTHRITIS
     Route: 048
     Dates: start: 20110901
  11. ALENDRONATE SODIUM [Concomitant]
     Indication: PROPHYLAXIS
     Route: 048
  12. FOLIAMIN [Concomitant]
     Indication: PROPHYLAXIS
     Route: 048
  13. OMEPRAL [Concomitant]
     Indication: PROPHYLAXIS
     Route: 048
  14. LOXONIN [Concomitant]
     Indication: RHEUMATOID ARTHRITIS
     Route: 048
     Dates: start: 200807, end: 20110413
  15. MUCOSTA [Concomitant]
     Indication: PROPHYLAXIS
     Route: 048
  16. GLIMICRON [Concomitant]
     Indication: DIABETES MELLITUS
     Route: 048
  17. METFORMIN HYDROCHLORIDE [Concomitant]
     Indication: DIABETES MELLITUS
     Route: 048
     Dates: start: 20090309, end: 20110831
  18. TAKEPRON [Concomitant]
     Indication: PROPHYLAXIS
     Route: 048
  19. URSO [Concomitant]
     Route: 048
  20. NOVORAPID [Concomitant]
     Indication: DIABETES MELLITUS
     Route: 058
  21. METFORMIN HYDROCHLORIDE [Concomitant]
     Indication: DIABETES MELLITUS
     Route: 048
  22. CELECOX [Concomitant]
     Indication: RHEUMATOID ARTHRITIS
     Route: 048
     Dates: start: 20110414

REACTIONS (1)
  - Cerebral haemorrhage [Recovering/Resolving]
